FAERS Safety Report 21818836 (Version 1)
Quarter: 2023Q1

REPORT INFORMATION
  Report Type: Spontaneous
  Country: US (occurrence: None)
  Receive Date: 20230104
  Receipt Date: 20230104
  Transmission Date: 20230418
  Serious: Yes (Death, Life-Threatening, Hospitalization, Disabling, Other)
  Sender: FDA-Public Use
  Company Number: None

PATIENT
  Age: 48 Year
  Sex: Female

DRUGS (2)
  1. DILANTIN [Suspect]
     Active Substance: PHENYTOIN
     Indication: Seizure
     Route: 042
     Dates: start: 19960605, end: 19960610
  2. spinal fusion screws [Concomitant]

REACTIONS (5)
  - Seizure [None]
  - Organ failure [None]
  - Mass [None]
  - Pneumonia [None]
  - Malignant neoplasm progression [None]

NARRATIVE: CASE EVENT DATE: 19960605
